FAERS Safety Report 9414417 (Version 1)
Quarter: 2013Q3

REPORT INFORMATION
  Report Type: Spontaneous
  Country: FR (occurrence: None)
  Receive Date: 20130717
  Receipt Date: 20130717
  Transmission Date: 20140515
  Serious: Yes (Hospitalization)
  Sender: FDA-Public Use
  Company Number: 2013000165

PATIENT
  Age: 61 Year
  Sex: Female

DRUGS (1)
  1. ACEON (PERINDOPRIL ERBUMINE) TABLET, 2MG [Suspect]
     Indication: HYPERTENSION
     Route: 048
     Dates: start: 20130605, end: 20130607

REACTIONS (2)
  - Erythema [None]
  - Angioedema [None]
